FAERS Safety Report 7740978-1 (Version None)
Quarter: 2011Q3

REPORT INFORMATION
  Report Type: 
  Country: None (occurrence: None)
  Receive Date: 20110909
  Receipt Date: 20110902
  Transmission Date: 20111222
  Serious: Yes (Other)
  Sender: FDA-Public Use
  Company Number: US-ABBOTT-11P-163-0851700-00

PATIENT
  Age: 54 Year
  Sex: Female

DRUGS (13)
  1. HUMIRA [Suspect]
     Indication: PSORIATIC ARTHROPATHY
     Route: 058
     Dates: start: 20091101, end: 20110616
  2. LORATADINE [Concomitant]
     Indication: SEASONAL ALLERGY
  3. TRAMADOL HYDROCHLORIDE [Concomitant]
     Indication: PAIN
  4. CHLORTHALIDONE [Concomitant]
     Indication: HYPERTENSION
  5. CELEBREX [Concomitant]
     Indication: ARTHRALGIA
  6. PREMARIN [Concomitant]
     Indication: HORMONE REPLACEMENT THERAPY
  7. OMEPRAZOLE [Concomitant]
     Indication: CROHN'S DISEASE
  8. TYLENOL-500 [Concomitant]
     Indication: PAIN
  9. SUDAFED 12 HOUR [Concomitant]
     Indication: SEASONAL ALLERGY
  10. LIPITOR [Concomitant]
     Indication: BLOOD CHOLESTEROL INCREASED
  11. HUMIRA [Suspect]
     Indication: CROHN'S DISEASE
     Route: 058
     Dates: start: 20110722
  12. CITALOPRAM HYDROBROMIDE [Concomitant]
     Indication: FIBROMYALGIA
  13. ZANAFLEX [Concomitant]
     Indication: FIBROMYALGIA

REACTIONS (3)
  - ARTHRALGIA [None]
  - INTESTINAL STENOSIS [None]
  - SMALL INTESTINAL OBSTRUCTION [None]
